FAERS Safety Report 6588154-2 (Version None)
Quarter: 2010Q1

REPORT INFORMATION
  Report Type: 
  Country: None (occurrence: None)
  Receive Date: 20100218
  Receipt Date: 20091026
  Transmission Date: 20100710
  Serious: No
  Sender: FDA-Public Use
  Company Number: US-ASTRAZENECA-2009SE22790

PATIENT
  Age: 81 Year
  Sex: Female
  Weight: 68 kg

DRUGS (13)
  1. PLENDIL [Suspect]
     Route: 048
  2. HYZAAR [Concomitant]
  3. LEXAPRO [Concomitant]
  4. FOSAMAX [Concomitant]
  5. MOBIC [Concomitant]
  6. ASPIRIN [Concomitant]
  7. ALLEGRA [Concomitant]
  8. SUPPLEMENTS [Concomitant]
  9. TOPROL-XL [Concomitant]
  10. PRAVACHOL [Concomitant]
  11. TOPRAMAX [Concomitant]
  12. TYLENOL-500 [Concomitant]
  13. MICLECIN [Concomitant]

REACTIONS (9)
  - ALOPECIA [None]
  - ARTHRITIS [None]
  - BLOOD CHOLESTEROL INCREASED [None]
  - DECREASED APPETITE [None]
  - DEPRESSION [None]
  - HYPERTENSION [None]
  - OEDEMA PERIPHERAL [None]
  - OSTEOPOROSIS [None]
  - PRURITUS [None]
